FAERS Safety Report 8766510 (Version 4)
Quarter: 2013Q4

REPORT INFORMATION
  Report Type: Report from Study
  Country: JP (occurrence: JP)
  Receive Date: 20120904
  Receipt Date: 20131031
  Transmission Date: 20140711
  Serious: Yes (Hospitalization)
  Sender: FDA-Public Use
  Company Number: JP-MERCK-1205USA03833

PATIENT
  Age: 57 Year
  Sex: Male
  Weight: 66.5 kg

DRUGS (4)
  1. VANIPREVIR [Suspect]
     Indication: CHRONIC HEPATITIS C
     Dosage: 2 DF, BID
     Route: 048
     Dates: start: 20111006, end: 20120320
  2. PEGINTRON POWDER FOR INJECTION 100MICROG [Suspect]
     Indication: CHRONIC HEPATITIS C
     Dosage: 100 ?G, QW
     Route: 048
     Dates: start: 20111006, end: 20120315
  3. REBETOL CAPSULES 200MG [Suspect]
     Indication: CHRONIC HEPATITIS C
     Dosage: 2 DF, BID
     Route: 048
     Dates: start: 20111006, end: 20120320
  4. GASTER D [Concomitant]
     Indication: PROPHYLAXIS
     Dosage: 20 MG, BID
     Route: 048
     Dates: start: 20111215, end: 20120323

REACTIONS (1)
  - Hepatocellular carcinoma [Recovered/Resolved]
